FAERS Safety Report 16036308 (Version 2)
Quarter: 2020Q1

REPORT INFORMATION
  Report Type: Spontaneous
  Country: US (occurrence: US)
  Receive Date: 20190305
  Receipt Date: 20200310
  Transmission Date: 20200409
  Serious: No
  Sender: FDA-Public Use
  Company Number: US-ALLERGAN-1833829US

PATIENT
  Sex: Female
  Weight: 69.85 kg

DRUGS (1)
  1. ESTRACE [Suspect]
     Active Substance: ESTRADIOL
     Indication: OESTROGEN REPLACEMENT THERAPY
     Dosage: UNK UNK, Q WEEK
     Route: 067

REACTIONS (2)
  - Application site irritation [Not Recovered/Not Resolved]
  - Vulvovaginal discomfort [Unknown]
